FAERS Safety Report 7573000-0 (Version None)
Quarter: 2011Q2

REPORT INFORMATION
  Report Type: 
  Country: None (occurrence: None)
  Receive Date: 20110620
  Receipt Date: 20110609
  Transmission Date: 20111010
  Serious: Yes (Other)
  Sender: FDA-Public Use
  Company Number: 2011060168

PATIENT
  Age: 65 Year
  Sex: Female

DRUGS (1)
  1. ROWASA [Suspect]
     Indication: DIVERTICULUM
     Dosage: 3 DOSAGE FORMS/DAY, ORAL
     Route: 048
     Dates: start: 20110418, end: 20110601

REACTIONS (2)
  - LUNG INFECTION [None]
  - BACK PAIN [None]
